FAERS Safety Report 12621605 (Version 1)
Quarter: 2016Q3

REPORT INFORMATION
  Report Type: Report from Study
  Country: FR (occurrence: FR)
  Receive Date: 20160804
  Receipt Date: 20160804
  Transmission Date: 20161109
  Serious: Yes (Death, Hospitalization)
  Sender: FDA-Public Use
  Company Number: FR-ROCHE-1807225

PATIENT
  Sex: Male

DRUGS (1)
  1. RITUXIMAB [Suspect]
     Active Substance: RITUXIMAB
     Indication: RHEUMATOID ARTHRITIS
     Route: 042

REACTIONS (5)
  - Squamous cell carcinoma of lung [Fatal]
  - Lung infection [Not Recovered/Not Resolved]
  - Infusion related reaction [Recovered/Resolved]
  - Pneumonia [Not Recovered/Not Resolved]
  - Pneumonia staphylococcal [Not Recovered/Not Resolved]

NARRATIVE: CASE EVENT DATE: 20090401
